FAERS Safety Report 5493319-7 (Version None)
Quarter: 2007Q4

REPORT INFORMATION
  Report Type: 
  Country: None (occurrence: None)
  Receive Date: 20071023
  Receipt Date: 20070219
  Transmission Date: 20080405
  Serious: No
  Sender: FDA-Public Use
  Company Number: US-BRISTOL-MYERS SQUIBB COMPANY-13684915

PATIENT
  Age: 27 Year
  Sex: Male
  Weight: 54 kg

DRUGS (1)
  1. KENALOG-40 [Suspect]
     Indication: SEBORRHOEIC DERMATITIS
     Route: 030
     Dates: end: 20061002

REACTIONS (2)
  - ACNE [None]
  - ALOPECIA [None]
